FAERS Safety Report 17890119 (Version 1)
Quarter: 2020Q2

REPORT INFORMATION
  Report Type: Report from Study
  Country: AU (occurrence: AU)
  Receive Date: 20200612
  Receipt Date: 20200612
  Transmission Date: 20200714
  Serious: Yes (Life-Threatening)
  Sender: FDA-Public Use
  Company Number: NVSC2020AU164031

PATIENT
  Sex: Female

DRUGS (1)
  1. COSENTYX [Suspect]
     Active Substance: SECUKINUMAB
     Indication: PSORIATIC ARTHROPATHY
     Dosage: UNK UNK, QW
     Route: 058
     Dates: start: 20170625

REACTIONS (5)
  - Urinary tract infection [Unknown]
  - Psoriasis [Recovering/Resolving]
  - Myocardial infarction [Unknown]
  - Inappropriate schedule of product administration [Unknown]
  - Salmonellosis [Unknown]
